FAERS Safety Report 20455024 (Version 1)
Quarter: 2022Q1

REPORT INFORMATION
  Report Type: Spontaneous
  Country: US (occurrence: None)
  Receive Date: 20220209
  Receipt Date: 20220209
  Transmission Date: 20220423
  Serious: Yes (Life-Threatening, Other)
  Sender: FDA-Public Use
  Company Number: None

PATIENT
  Age: 65 Year
  Sex: Male
  Weight: 123.75 kg

DRUGS (13)
  1. ENOXAPARIN SODIUM [Suspect]
     Active Substance: ENOXAPARIN SODIUM
     Indication: Anticoagulant therapy
     Dosage: OTHER QUANTITY : 1 INJECTION(S);?FREQUENCY : TWICE A DAY;?
     Route: 030
     Dates: start: 20220123, end: 20220209
  2. FLORESAMIDE [Concomitant]
  3. TESTOSTERONE [Concomitant]
     Active Substance: TESTOSTERONE
  4. ERYTHYROX [Concomitant]
  5. METOPROLOL [Concomitant]
     Active Substance: METOPROLOL
  6. POTASSIUM CHLORIDE [Concomitant]
     Active Substance: POTASSIUM CHLORIDE
  7. GLIMEPIRIDE [Concomitant]
     Active Substance: GLIMEPIRIDE
  8. METFORMIN [Concomitant]
     Active Substance: METFORMIN HYDROCHLORIDE
  9. TRESIBA [Concomitant]
     Active Substance: INSULIN DEGLUDEC
  10. WARFARIN [Concomitant]
     Active Substance: WARFARIN
  11. INSULIN R [Concomitant]
  12. FOLIC ACID [Concomitant]
     Active Substance: FOLIC ACID
  13. TYLENOL [Concomitant]
     Active Substance: ACETAMINOPHEN

REACTIONS (3)
  - Hypoglycaemia [None]
  - Feeling abnormal [None]
  - Drug interaction [None]

NARRATIVE: CASE EVENT DATE: 20220209
